FAERS Safety Report 5605451-5 (Version None)
Quarter: 2008Q1

REPORT INFORMATION
  Report Type: 
  Country: None (occurrence: None)
  Receive Date: 20080124
  Receipt Date: 20080124
  Transmission Date: 20080703
  Serious: No
  Sender: FDA-Public Use
  Company Number: None

PATIENT
  Sex: Male
  Weight: 70.3075 kg

DRUGS (2)
  1. BUPROPRION XL 300MG (TEVA) [Suspect]
     Indication: BIPOLAR I DISORDER
     Dosage: 300MG DAILY ORAL
     Route: 048
     Dates: start: 20071103, end: 20071203
  2. BUPROPRION XL 300MG (WATSON) [Suspect]
     Indication: BIPOLAR I DISORDER
     Dosage: 300MG DAILY ORAL
     Route: 048
     Dates: start: 20071204, end: 20071220

REACTIONS (4)
  - AGGRESSION [None]
  - IRRITABILITY [None]
  - LETHARGY [None]
  - PHARMACEUTICAL PRODUCT COMPLAINT [None]
